FAERS Safety Report 24563702 (Version 1)
Quarter: 2024Q4

REPORT INFORMATION
  Report Type: Spontaneous
  Country: IT (occurrence: IT)
  Receive Date: 20241030
  Receipt Date: 20241030
  Transmission Date: 20250115
  Serious: Yes (Hospitalization, Other)
  Sender: MICRO LABS
  Company Number: IT-862174955-ML2024-05705

PATIENT
  Age: 73 Year
  Sex: Male

DRUGS (2)
  1. DICLOFENAC [Suspect]
     Active Substance: DICLOFENAC
     Indication: Back pain
     Route: 030
  2. DICLOFENAC [Suspect]
     Active Substance: DICLOFENAC
     Dosage: 2 ADDITIONAL DOSAGE RECEIVED ON THE SAME DAY
     Route: 030

REACTIONS (8)
  - Paralysis [Recovered/Resolved]
  - Hypocalcaemia [Recovered/Resolved]
  - Hypokalaemia [Recovered/Resolved]
  - Hypomagnesaemia [Recovered/Resolved]
  - Acidosis hyperchloraemic [Recovered/Resolved]
  - Nausea [Unknown]
  - Dizziness [Unknown]
  - Intentional product misuse [Unknown]
